FAERS Safety Report 8834384 (Version 1)
Quarter: 2012Q4

REPORT INFORMATION
  Report Type: Report from Study
  Country: US (occurrence: US)
  Receive Date: 20121010
  Receipt Date: 20121010
  Transmission Date: 20130627
  Serious: Yes (Other)
  Sender: FDA-Public Use
  Company Number: US-ABBOTT-12P-163-0991562-00

PATIENT
  Sex: Female
  Weight: 47.67 kg

DRUGS (6)
  1. HUMIRA [Suspect]
     Indication: COLITIS ULCERATIVE
     Route: 058
     Dates: start: 201204, end: 201206
  2. HUMIRA [Suspect]
     Route: 058
     Dates: start: 20121002
  3. CIPRO [Concomitant]
     Indication: POUCHITIS
  4. ESTROGEN NOS W/PROGESTERONE/TESTOSTERONE [Concomitant]
     Indication: MENOPAUSE
  5. MULTIPLE VITAMINS [Concomitant]
     Indication: VITAMIN SUPPLEMENTATION
  6. AMBIEN [Concomitant]
     Indication: RESTLESSNESS

REACTIONS (8)
  - Inflammatory bowel disease [Recovered/Resolved]
  - Colitis [Not Recovered/Not Resolved]
  - Drug ineffective [Not Recovered/Not Resolved]
  - Impaired healing [Recovering/Resolving]
  - Impaired healing [Recovering/Resolving]
  - Colitis ulcerative [Not Recovered/Not Resolved]
  - Rectal haemorrhage [Not Recovered/Not Resolved]
  - Proctalgia [Not Recovered/Not Resolved]
